FAERS Safety Report 5201196-4 (Version None)
Quarter: 2007Q1

REPORT INFORMATION
  Report Type: 
  Country: None (occurrence: None)
  Receive Date: 20070103
  Receipt Date: 20061216
  Transmission Date: 20070707
  Serious: Yes (Other)
  Sender: FDA-Public Use
  Company Number: 15374

PATIENT
  Age: 62 Year
  Sex: Female

DRUGS (1)
  1. ANZATAX [Suspect]
     Indication: OVARIAN CANCER
     Dosage: 300 MG IV
     Route: 042
     Dates: start: 20061212, end: 20061212

REACTIONS (4)
  - BACK PAIN [None]
  - FLUSHING [None]
  - INFUSION RELATED REACTION [None]
  - MALAISE [None]
